FAERS Safety Report 19237729 (Version 1)
Quarter: 2021Q2

REPORT INFORMATION
  Report Type: Spontaneous
  Country: RO (occurrence: RO)
  Receive Date: 20210510
  Receipt Date: 20210510
  Transmission Date: 20210717
  Serious: Yes (Other)
  Sender: FDA-Public Use
  Company Number: RO-PFIZER INC-2021467487

PATIENT
  Age: 26 Year
  Sex: Female

DRUGS (3)
  1. METHYLPREDNISOLONE. [Suspect]
     Active Substance: METHYLPREDNISOLONE
     Indication: ERYTHEMA NODOSUM
     Dosage: 32 MG, 1X/DAY LOWERING THE DOSE WITHIN 12 DAYS
  2. HEPARIN [Concomitant]
     Active Substance: HEPARIN SODIUM
  3. METHYLPREDNISOLONE. [Suspect]
     Active Substance: METHYLPREDNISOLONE
     Dosage: 32 MG A DAY TREATMENT WITH SLOWLY LOWERING THE DOSE

REACTIONS (3)
  - Disease recurrence [Unknown]
  - Staphylococcal infection [Unknown]
  - Pseudomonas infection [Unknown]
